FAERS Safety Report 8405904-0 (Version None)
Quarter: 2012Q1

REPORT INFORMATION
  Report Type: 
  Country: None (occurrence: None)
  Receive Date: 20120323
  Receipt Date: 20110107
  Transmission Date: 20120608
  Serious: Yes (Other)
  Sender: FDA-Public Use
  Company Number: 163-21880-11011008

PATIENT
  Age: 55 Year
  Sex: Male
  Weight: 63 kg

DRUGS (3)
  1. WARFARIN SODIUM [Concomitant]
  2. MORPHINE [Concomitant]
  3. REVLIMID [Suspect]
     Indication: MULTIPLE MYELOMA
     Dosage: 10 MG, 1 IN 1 D, PO, 10 MG, 1 IN 1 D, PO
     Route: 048
     Dates: start: 20101130

REACTIONS (5)
  - FATIGUE [None]
  - DRY SKIN [None]
  - DEEP VEIN THROMBOSIS [None]
  - PRURITUS [None]
  - BACK PAIN [None]
